FAERS Safety Report 6546508-4 (Version None)
Quarter: 2010Q1

REPORT INFORMATION
  Report Type: 
  Country: None (occurrence: None)
  Receive Date: 20100122
  Receipt Date: 20100108
  Transmission Date: 20100710
  Serious: Yes (Death)
  Sender: FDA-Public Use
  Company Number: GR-ROCHE-663382

PATIENT
  Sex: Male
  Weight: 111 kg

DRUGS (9)
  1. TOCILIZUMAB [Suspect]
     Indication: RHEUMATOID ARTHRITIS
     Dosage: BASELINE
     Route: 042
     Dates: start: 20090723
  2. TOCILIZUMAB [Suspect]
     Dosage: WEEK 04
     Route: 042
     Dates: start: 20090825
  3. TOCILIZUMAB [Suspect]
     Dosage: WEEK 08
     Route: 042
     Dates: start: 20090924
  4. TOCILIZUMAB [Suspect]
     Dosage: DOSE DISCONTIUNED
     Route: 042
     Dates: start: 20091016
  5. METHOTREXATE [Concomitant]
     Route: 048
     Dates: start: 20040101, end: 20091016
  6. DIOVAN [Concomitant]
     Dates: end: 20091016
  7. LASIX [Concomitant]
     Dates: end: 20091016
  8. SALOSPIR [Concomitant]
     Dates: end: 20091016
  9. ANGORON [Concomitant]
     Dosage: TDD REPORTED: 200 MG 1/2 X 1
     Dates: end: 20091016

REACTIONS (1)
  - CARDIAC ARREST [None]
